FAERS Safety Report 20572231 (Version 1)
Quarter: 2022Q1

REPORT INFORMATION
  Report Type: Spontaneous
  Country: FR (occurrence: FR)
  Receive Date: 20220309
  Receipt Date: 20220309
  Transmission Date: 20220423
  Serious: Yes (Hospitalization, Other)
  Sender: FDA-Public Use
  Company Number: FR-ABBVIE-22K-056-4306212-00

PATIENT
  Age: 55 Year
  Sex: Female

DRUGS (5)
  1. VALPROATE SODIUM [Suspect]
     Active Substance: VALPROATE SODIUM
     Indication: Affective disorder
     Route: 048
     Dates: start: 20191022, end: 20191027
  2. DEPAKOTE [Suspect]
     Active Substance: DIVALPROEX SODIUM
     Indication: Affective disorder
     Route: 048
     Dates: start: 20191022, end: 20191022
  3. LAMOTRIGINE [Suspect]
     Active Substance: LAMOTRIGINE
     Indication: Affective disorder
     Route: 048
     Dates: start: 20191022, end: 20191027
  4. METEOSPASMYL [Concomitant]
     Indication: Product used for unknown indication
  5. DIOSMIN [Concomitant]
     Active Substance: DIOSMIN
     Indication: Product used for unknown indication

REACTIONS (4)
  - Toxic skin eruption [Recovering/Resolving]
  - Hypersensitivity [Recovering/Resolving]
  - Hepatitis [Recovering/Resolving]
  - Lymphopenia [Recovered/Resolved]

NARRATIVE: CASE EVENT DATE: 20191027
